FAERS Safety Report 22966536 (Version 6)
Quarter: 2024Q2

REPORT INFORMATION
  Report Type: Report from Study
  Country: CA (occurrence: CA)
  Receive Date: 20230921
  Receipt Date: 20240625
  Transmission Date: 20240715
  Serious: Yes (Other)
  Sender: FDA-Public Use
  Company Number: CA-JNJFOC-20230223749

PATIENT
  Age: 38 Year
  Sex: Female
  Weight: 80 kg

DRUGS (5)
  1. REMICADE [Suspect]
     Active Substance: INFLIXIMAB
     Indication: Crohn^s disease
     Dosage: THERAPY START DATE ALSO REPORTED AS 18-JUL-2022
     Route: 041
     Dates: start: 20020724
  2. REMICADE [Suspect]
     Active Substance: INFLIXIMAB
     Indication: Colitis ulcerative
     Dosage: THERAPY START DATE ALSO REPORTED AS 18-JUL-2022
     Route: 041
     Dates: start: 20170920
  3. REMICADE [Suspect]
     Active Substance: INFLIXIMAB
     Dosage: PATIENT RECEIVED DOSE ON 08-OCT-2023
     Route: 041
  4. REMICADE [Suspect]
     Active Substance: INFLIXIMAB
     Route: 041
     Dates: start: 20240331
  5. REMICADE [Suspect]
     Active Substance: INFLIXIMAB
     Route: 041

REACTIONS (13)
  - Intestinal stenosis [Unknown]
  - Colitis ulcerative [Not Recovered/Not Resolved]
  - Crohn^s disease [Not Recovered/Not Resolved]
  - Enterostomy [Unknown]
  - Ileocaecal resection [Unknown]
  - COVID-19 [Not Recovered/Not Resolved]
  - Gastroenteritis [Not Recovered/Not Resolved]
  - General physical condition abnormal [Unknown]
  - Disturbance in attention [Unknown]
  - Stress [Unknown]
  - Insomnia [Unknown]
  - Fatigue [Recovered/Resolved]
  - Procedural pain [Unknown]

NARRATIVE: CASE EVENT DATE: 20230101
